FAERS Safety Report 12203478 (Version 3)
Quarter: 2016Q2

REPORT INFORMATION
  Report Type: Spontaneous
  Country: FR (occurrence: FR)
  Receive Date: 20160323
  Receipt Date: 20160408
  Transmission Date: 20160815
  Serious: Yes (Death, Hospitalization)
  Sender: FDA-Public Use
  Company Number: PHHY2016FR022759

PATIENT
  Age: 39 Year
  Sex: Female

DRUGS (11)
  1. DILANTIN (PHENYTOIN SODIUM) [Suspect]
     Active Substance: PHENYTOIN SODIUM
     Indication: STATUS EPILEPTICUS
     Dosage: 700 MG, UNK
     Route: 042
     Dates: start: 20160117, end: 20160207
  2. PHENOBARBITAL. [Suspect]
     Active Substance: PHENOBARBITAL
     Dosage: FOR 24 HOURS
     Route: 042
     Dates: start: 20160130
  3. TRILEPTAL [Suspect]
     Active Substance: OXCARBAZEPINE
     Indication: STATUS EPILEPTICUS
     Dosage: UNK
     Route: 065
     Dates: start: 20160118, end: 20160204
  4. PHENOBARBITAL. [Suspect]
     Active Substance: PHENOBARBITAL
     Indication: STATUS EPILEPTICUS
     Dosage: UNK
     Route: 042
     Dates: start: 20160117, end: 20160119
  5. PHENOBARBITAL. [Suspect]
     Active Substance: PHENOBARBITAL
     Dosage: UNK
     Route: 042
     Dates: start: 20160205
  6. PROPOFOL. [Suspect]
     Active Substance: PROPOFOL
     Indication: STATUS EPILEPTICUS
     Dosage: UNK
     Route: 042
     Dates: start: 20160117
  7. VIMPAT [Suspect]
     Active Substance: LACOSAMIDE
     Indication: STATUS EPILEPTICUS
     Dosage: UNK
     Route: 065
     Dates: start: 20160118, end: 20160130
  8. RIVOTRIL [Suspect]
     Active Substance: CLONAZEPAM
     Indication: STATUS EPILEPTICUS
     Dosage: 2 MG, QD
     Route: 065
     Dates: start: 20160118, end: 20160119
  9. KEPPRA [Suspect]
     Active Substance: LEVETIRACETAM
     Indication: STATUS EPILEPTICUS
     Dosage: 1 G, TID
     Route: 042
     Dates: start: 20160117, end: 20160119
  10. RIVOTRIL [Suspect]
     Active Substance: CLONAZEPAM
     Dosage: 4 MG, QD
     Route: 065
     Dates: start: 20160119
  11. KEPPRA [Suspect]
     Active Substance: LEVETIRACETAM
     Dosage: UNK
     Route: 065
     Dates: start: 20160125

REACTIONS (1)
  - Agranulocytosis [Fatal]

NARRATIVE: CASE EVENT DATE: 20160207
